FAERS Safety Report 5473863-9 (Version None)
Quarter: 2007Q4

REPORT INFORMATION
  Report Type: 
  Country: None (occurrence: None)
  Receive Date: 20071001
  Receipt Date: 20070919
  Transmission Date: 20080405
  Serious: Yes (Other)
  Sender: FDA-Public Use
  Company Number: US-PFIZER INC-2007078813

PATIENT
  Sex: Female
  Weight: 60.454 kg

DRUGS (4)
  1. CHANTIX [Suspect]
     Indication: SMOKING CESSATION THERAPY
     Route: 048
     Dates: start: 20070801, end: 20070901
  2. TRAZODONE HCL [Concomitant]
     Indication: DEPRESSION
     Route: 048
  3. PLAQUENIL [Concomitant]
     Indication: RHEUMATOID ARTHRITIS
     Route: 048
  4. PREDNISONE [Concomitant]
     Indication: RHEUMATOID ARTHRITIS
     Route: 048

REACTIONS (6)
  - HYPOMANIA [None]
  - INSOMNIA [None]
  - LOGORRHOEA [None]
  - NIGHTMARE [None]
  - OBSESSIVE THOUGHTS [None]
  - SOMNOLENCE [None]
